FAERS Safety Report 18504231 (Version 3)
Quarter: 2021Q2

REPORT INFORMATION
  Report Type: Spontaneous
  Country: JP (occurrence: JP)
  Receive Date: 20201113
  Receipt Date: 20210407
  Transmission Date: 20210717
  Serious: Yes (Hospitalization)
  Sender: FDA-Public Use
  Company Number: JP-GILEAD-2020-0504219

PATIENT
  Age: 31 Year
  Sex: Female

DRUGS (4)
  1. METHYLPREDNISOLONE. [Concomitant]
     Active Substance: METHYLPREDNISOLONE
     Indication: COVID-19
  2. FAVIPIRAVIR [Concomitant]
     Active Substance: FAVIPIRAVIR
     Indication: COVID-19
  3. INSULIN [Concomitant]
     Active Substance: INSULIN NOS
     Indication: GESTATIONAL DIABETES
  4. REMDESIVIR. [Suspect]
     Active Substance: REMDESIVIR
     Indication: COVID-19
     Dosage: UNK
     Route: 065

REACTIONS (1)
  - COVID-19 [Unknown]
